FAERS Safety Report 9863883 (Version 3)
Quarter: 2014Q1

REPORT INFORMATION
  Report Type: Spontaneous
  Country: JP (occurrence: JP)
  Receive Date: 20140203
  Receipt Date: 20140305
  Transmission Date: 20141002
  Serious: Yes (Hospitalization)
  Sender: FDA-Public Use
  Company Number: JP-GLAXOSMITHKLINE-B0965158A

PATIENT
  Age: 39 Year
  Sex: Female

DRUGS (4)
  1. RELENZA [Suspect]
     Indication: INFLUENZA
     Dosage: 10MG TWICE PER DAY
     Route: 055
     Dates: start: 20140124, end: 20140128
  2. THEODUR [Suspect]
     Indication: PRODUCT USED FOR UNKNOWN INDICATION
     Route: 048
     Dates: start: 20140124, end: 20140126
  3. GENINAX [Concomitant]
     Indication: STREPTOCOCCAL INFECTION
     Route: 048
     Dates: start: 20140124
  4. METOCLOPRAMIDE [Concomitant]
     Route: 065
     Dates: start: 20140126

REACTIONS (5)
  - Pneumonia viral [Recovered/Resolved]
  - Pathogen resistance [Unknown]
  - Nausea [Recovered/Resolved]
  - Chest X-ray abnormal [Unknown]
  - Hyperthermia [Unknown]
